APPROVED DRUG PRODUCT: CARBOPLATIN
Active Ingredient: CARBOPLATIN
Strength: 50MG/VIAL
Dosage Form/Route: INJECTABLE;INJECTION
Application: A077383 | Product #001
Applicant: CIPLA LTD
Approved: Jan 27, 2006 | RLD: No | RS: No | Type: DISCN